FAERS Safety Report 25024485 (Version 1)
Quarter: 2025Q1

REPORT INFORMATION
  Report Type: Spontaneous
  Country: GB (occurrence: GB)
  Receive Date: 20250228
  Receipt Date: 20250228
  Transmission Date: 20250409
  Serious: Yes (Other)
  Sender: PFIZER
  Company Number: None

PATIENT
  Age: 11 Year
  Sex: Male
  Weight: 34 kg

DRUGS (3)
  1. AZITHROMYCIN [Suspect]
     Active Substance: AZITHROMYCIN
     Indication: Meningitis
     Dates: start: 20250211
  2. CEFTRIAXONE [Concomitant]
     Active Substance: CEFTRIAXONE
     Indication: Meningitis
     Dates: start: 20250211, end: 20250224
  3. ACICLOVIR FANNIN [Concomitant]
     Indication: Meningitis
     Dates: start: 20250211, end: 20250212

REACTIONS (6)
  - Delirium [Recovered/Resolved with Sequelae]
  - Hallucination, visual [Recovered/Resolved]
  - Illusion [Recovered/Resolved]
  - Anxiety [Unknown]
  - Sleep deficit [Unknown]
  - Off label use [Unknown]

NARRATIVE: CASE EVENT DATE: 20250201
